FAERS Safety Report 18417835 (Version 1)
Quarter: 2020Q4

REPORT INFORMATION
  Report Type: Spontaneous
  Country: CO (occurrence: CO)
  Receive Date: 20201022
  Receipt Date: 20201022
  Transmission Date: 20210114
  Serious: Yes (Other)
  Sender: FDA-Public Use
  Company Number: CO-BIOMARINAP-CO-2020-129791

PATIENT
  Age: 4 Year
  Sex: Male
  Weight: 13.5 kg

DRUGS (1)
  1. VIMIZIM [Suspect]
     Active Substance: ELOSULFASE ALFA
     Indication: MUCOPOLYSACCHARIDOSIS IV
     Dosage: 26 MILLIGRAM
     Route: 042
     Dates: start: 20191003

REACTIONS (6)
  - Cheilitis [Unknown]
  - Hypersensitivity [Unknown]
  - Pruritus [Unknown]
  - Flushing [Unknown]
  - Rash [Unknown]
  - Wrist deformity [Unknown]

NARRATIVE: CASE EVENT DATE: 20200416
